FAERS Safety Report 18186439 (Version 1)
Quarter: 2020Q3

REPORT INFORMATION
  Report Type: Spontaneous
  Country: US (occurrence: US)
  Receive Date: 20200821
  Receipt Date: 20200821
  Transmission Date: 20201103
  Serious: No
  Sender: FDA-Public Use
  Company Number: None

PATIENT
  Age: 76 Year
  Sex: Female

DRUGS (1)
  1. GLATIRAMER ACETATE 40 MG/ML MYLAN [Suspect]
     Active Substance: GLATIRAMER ACETATE
     Indication: MULTIPLE SCLEROSIS
     Route: 058
     Dates: start: 201812

REACTIONS (4)
  - Product complaint [None]
  - Syringe issue [None]
  - Wrong technique in device usage process [None]
  - Accidental exposure to product [None]

NARRATIVE: CASE EVENT DATE: 20200810
